FAERS Safety Report 8472430-2 (Version None)
Quarter: 2012Q2

REPORT INFORMATION
  Report Type: 
  Country: None (occurrence: None)
  Receive Date: 20120627
  Receipt Date: 20110921
  Transmission Date: 20120825
  Serious: No
  Sender: FDA-Public Use
  Company Number: US-AMGEN-USASP2011049225

PATIENT
  Age: 61 Year
  Sex: Female
  Weight: 70.295 kg

DRUGS (1)
  1. PROCRIT [Suspect]
     Indication: CHRONIC MYELOID LEUKAEMIA
     Dosage: 40000 IU, PRN
     Route: 058
     Dates: start: 20030101

REACTIONS (1)
  - HAEMOGLOBIN DECREASED [None]
